FAERS Safety Report 5797305-9 (Version None)
Quarter: 2008Q3

REPORT INFORMATION
  Report Type: 
  Country: None (occurrence: None)
  Receive Date: 20080701
  Receipt Date: 20080620
  Transmission Date: 20090109
  Serious: Yes (Hospitalization)
  Sender: FDA-Public Use
  Company Number: GB-PFIZER INC-2008053248

PATIENT
  Sex: Male

DRUGS (3)
  1. SU-011,248 [Suspect]
     Indication: RENAL CELL CARCINOMA
     Route: 048
  2. MORPHINE [Concomitant]
     Dosage: DAILY DOSE:120MG
  3. OXYCODONE HCL [Concomitant]
     Dosage: DAILY DOSE:70MG

REACTIONS (1)
  - CONFUSIONAL STATE [None]
